FAERS Safety Report 20539281 (Version 1)
Quarter: 2022Q1

REPORT INFORMATION
  Report Type: Spontaneous
  Country: CN (occurrence: CN)
  Receive Date: 20220302
  Receipt Date: 20220302
  Transmission Date: 20220423
  Serious: Yes (Other)
  Sender: FDA-Public Use
  Company Number: CN-GRUNENTHAL-2021-269756

PATIENT
  Age: 41 Year
  Sex: Female
  Weight: 65 kg

DRUGS (1)
  1. TRAMADOL HYDROCHLORIDE [Suspect]
     Active Substance: TRAMADOL HYDROCHLORIDE
     Indication: Abdominal pain upper
     Dosage: 100 MILLIGRAM, 1/DAY
     Route: 030
     Dates: start: 20210613, end: 20210613

REACTIONS (2)
  - Anaphylactoid shock [Recovering/Resolving]
  - Anaphylactoid shock [Recovering/Resolving]

NARRATIVE: CASE EVENT DATE: 20210613
